FAERS Safety Report 4968210-2 (Version None)
Quarter: 2006Q2

REPORT INFORMATION
  Report Type: 
  Country: None (occurrence: None)
  Receive Date: 20060405
  Receipt Date: 20060323
  Transmission Date: 20061013
  Serious: Yes (Other)
  Sender: FDA-Public Use
  Company Number: 2006040931

PATIENT
  Age: 93 Year
  Sex: Female

DRUGS (10)
  1. AZITHROMYCIN [Suspect]
     Indication: LOWER RESPIRATORY TRACT INFECTION
     Dosage: (DAILY INTERVAL:  EVERY DAY), ORAL
     Route: 048
     Dates: start: 20060310, end: 20060311
  2. LEVOTHYROXINE SODIUM [Concomitant]
  3. LACTULOSE [Concomitant]
  4. TEMAZEPAM [Concomitant]
  5. ASPIRIN [Concomitant]
  6. ANASTROZOLE [Concomitant]
  7. DIGOXIN [Concomitant]
  8. LANSOPRAZOLE [Concomitant]
  9. DOXYCYCLINE [Concomitant]
  10. ALL OTHER THERAPEUTIC PRODUCTS (ALL OTHER THERAPEUTIC PRODUCTS) [Concomitant]

REACTIONS (2)
  - CONFUSIONAL STATE [None]
  - DELIRIUM [None]
